FAERS Safety Report 17031698 (Version 1)
Quarter: 2019Q4

REPORT INFORMATION
  Report Type: Spontaneous
  Country: US (occurrence: US)
  Receive Date: 20191114
  Receipt Date: 20191114
  Transmission Date: 20200122
  Serious: No
  Sender: FDA-Public Use
  Company Number: US-BEH-2019109396

PATIENT
  Age: 53 Year
  Sex: Female

DRUGS (23)
  1. NYSTATIN. [Concomitant]
     Active Substance: NYSTATIN
     Dosage: 500000 INTERNATIONAL UNIT
     Route: 065
  2. VITAMIN D;VITAMIN E [Concomitant]
     Dosage: 50000 INTERNATIONAL UNIT
     Route: 065
  3. HYDROCHLOROTHIAZID [Concomitant]
     Active Substance: HYDROCHLOROTHIAZIDE
     Dosage: 50 MILLIGRAM
     Route: 065
  4. RANITIDINE HYDROCHLORIDE. [Concomitant]
     Active Substance: RANITIDINE HYDROCHLORIDE
     Dosage: 300 MILLIGRAM
     Route: 065
  5. GABAPENTIN. [Concomitant]
     Active Substance: GABAPENTIN
  6. IRON [Concomitant]
     Active Substance: IRON
     Dosage: 28 MILLIGRAM
     Route: 065
  7. MELOXICAM. [Concomitant]
     Active Substance: MELOXICAM
  8. PROTONIX [Concomitant]
     Active Substance: PANTOPRAZOLE SODIUM
     Dosage: 40 MILLIGRAM
  9. DICYCLOMINE HCL [Concomitant]
     Active Substance: DICYCLOMINE HYDROCHLORIDE
  10. NEXPLANON [Concomitant]
     Active Substance: ETONOGESTREL
     Dosage: 68 MILLIGRAM
     Route: 065
  11. TRAMADOL HCL [Concomitant]
     Active Substance: TRAMADOL HYDROCHLORIDE
     Dosage: 50 MILLIGRAM
     Route: 065
  12. PRIVIGEN [Suspect]
     Active Substance: HUMAN IMMUNOGLOBULIN G
     Indication: MYASTHENIA GRAVIS
     Dosage: 20 GRAM (200 ML), QD (FOR 3 DAYS) EVERY 10 WEEKS
     Route: 042
     Dates: start: 201711
  13. CLONAZEPAM. [Concomitant]
     Active Substance: CLONAZEPAM
     Dosage: 2 MILLIGRAM
     Route: 065
  14. IMURAN [Concomitant]
     Active Substance: AZATHIOPRINE
     Dosage: 50 MILLIGRAM
     Route: 065
  15. MIRALAX [Concomitant]
     Active Substance: POLYETHYLENE GLYCOL 3350
  16. LINZESS [Concomitant]
     Active Substance: LINACLOTIDE
  17. PROAIR HFA [Concomitant]
     Active Substance: ALBUTEROL SULFATE
  18. VITAMIN B12 [VITAMIN B12 NOS] [Concomitant]
     Active Substance: CYANOCOBALAMIN
     Dosage: 500 MICROGRAM
     Route: 065
  19. PREDNISOLONE [PREDNISOLONE ACETATE] [Concomitant]
  20. SOMA [Concomitant]
     Active Substance: CARISOPRODOL
     Dosage: 350 MILLIGRAM
     Route: 065
  21. TYLENOL [Concomitant]
     Active Substance: ACETAMINOPHEN
     Indication: PREMEDICATION
  22. HYDROCODONE [Concomitant]
     Active Substance: HYDROCODONE
  23. MULTIVITAMINS [VITAMINS NOS] [Concomitant]
     Active Substance: VITAMINS

REACTIONS (4)
  - Fatigue [Recovered/Resolved]
  - Asthenia [Recovered/Resolved]
  - Pain [Recovered/Resolved]
  - Headache [Recovered/Resolved]
